FAERS Safety Report 5396634-0 (Version None)
Quarter: 2007Q3

REPORT INFORMATION
  Report Type: 
  Country: None (occurrence: None)
  Receive Date: 20070725
  Receipt Date: 20070718
  Transmission Date: 20080115
  Serious: Yes (Other)
  Sender: FDA-Public Use
  Company Number: A0656655A

PATIENT
  Age: 59 Year
  Sex: Female

DRUGS (12)
  1. COREG CR [Suspect]
     Indication: HYPERTENSION
     Route: 048
  2. COREG [Suspect]
     Indication: HYPERTENSION
     Route: 048
  3. LOTREL [Concomitant]
  4. LIPITOR [Concomitant]
  5. PLAVIX [Concomitant]
  6. ASPIRIN [Concomitant]
  7. LASIX [Concomitant]
     Dosage: 40MG TWICE PER DAY
  8. KLOR-CON [Concomitant]
     Dosage: 10MEQ PER DAY
  9. ACTOS [Concomitant]
  10. INSULIN [Concomitant]
  11. HYDRALAZINE HCL [Concomitant]
  12. PREDNISONE [Concomitant]
     Dosage: 5MG TWICE PER DAY

REACTIONS (3)
  - BLOOD PRESSURE INADEQUATELY CONTROLLED [None]
  - DYSPNOEA EXERTIONAL [None]
  - WHEEZING [None]
